FAERS Safety Report 4700770-9 (Version None)
Quarter: 2005Q2

REPORT INFORMATION
  Report Type: 
  Country: None (occurrence: None)
  Receive Date: 20050624
  Receipt Date: 20040714
  Transmission Date: 20051028
  Serious: Yes (Other)
  Sender: FDA-Public Use
  Company Number: 374590

PATIENT
  Age: 62 Year
  Sex: Male
  Weight: 64.4 kg

DRUGS (3)
  1. XELODA [Suspect]
     Indication: PANCREATIC CARCINOMA
     Dosage: 1000 MG 2 PER DAY ORAL
     Route: 048
     Dates: start: 20040630, end: 20040713
  2. COUMADIN [Suspect]
     Dosage: ORAL
     Route: 048
     Dates: start: 20040714
  3. VITAMIN B6 [Concomitant]

REACTIONS (3)
  - DRUG INTERACTION [None]
  - INTERNATIONAL NORMALISED RATIO INCREASED [None]
  - PROTHROMBIN TIME PROLONGED [None]
